FAERS Safety Report 8499593-7 (Version None)
Quarter: 2012Q3

REPORT INFORMATION
  Report Type: 
  Country: None (occurrence: None)
  Receive Date: 20120710
  Receipt Date: 20120702
  Transmission Date: 20120928
  Serious: Yes (Hospitalization)
  Sender: FDA-Public Use
  Company Number: JP-JNJFOC-20120701514

PATIENT
  Age: 77 Year
  Sex: Male

DRUGS (6)
  1. LANSOPRAZOLE [Suspect]
     Indication: PRODUCT USED FOR UNKNOWN INDICATION
     Dosage: 1 PER 1 DAY
     Route: 048
  2. TRAMADOL HCL [Suspect]
     Dosage: 1 PER 1 DAY
     Route: 048
     Dates: start: 20120607
  3. VOLTAREN [Suspect]
     Indication: PRODUCT USED FOR UNKNOWN INDICATION
     Dosage: 1 PER 1 DAY
     Route: 048
  4. TRAMADOL HCL [Suspect]
     Indication: PAIN
     Dosage: 1 PER 1 DAY
     Route: 048
     Dates: start: 20120308
  5. TRAMADOL HCL [Suspect]
     Dosage: 1 PER 1 DAY
     Route: 048
     Dates: start: 20120424
  6. VOLTAREN [Concomitant]
     Route: 065

REACTIONS (5)
  - BLISTER [None]
  - SMALL INTESTINE ULCER [None]
  - DIARRHOEA [None]
  - LARGE INTESTINAL ULCER [None]
  - BLOOD CREATININE INCREASED [None]
